FAERS Safety Report 6795729-4 (Version None)
Quarter: 2010Q2

REPORT INFORMATION
  Report Type: 
  Country: None (occurrence: None)
  Receive Date: 20100622
  Receipt Date: 20100609
  Transmission Date: 20101027
  Serious: Yes (Other)
  Sender: FDA-Public Use
  Company Number: 8013581

PATIENT
  Age: 24 Month
  Sex: Female

DRUGS (1)
  1. LEVETIRACETAM [Suspect]
     Indication: EPILEPSY
     Dosage: (RANGE: 40-100 MG/KG/DAY)

REACTIONS (2)
  - ENTEROCOLITIS HAEMORRHAGIC [None]
  - VOMITING [None]
